FAERS Safety Report 6604992-1 (Version None)
Quarter: 2010Q1

REPORT INFORMATION
  Report Type: 
  Country: None (occurrence: None)
  Receive Date: 20100219
  Receipt Date: 20100211
  Transmission Date: 20100710
  Serious: Yes (Hospitalization, Other)
  Sender: FDA-Public Use
  Company Number: US021270

PATIENT
  Age: 53 Year
  Sex: Male

DRUGS (4)
  1. TRISENOX [Suspect]
     Indication: ACUTE PROMYELOCYTIC LEUKAEMIA
     Dosage: INTRAVENOUS
     Route: 042
  2. CYTARABINE [Concomitant]
  3. DAUNORUBICIN HCL [Concomitant]
  4. ATRACURIUM BESYLATE [Concomitant]

REACTIONS (1)
  - BONE MARROW NECROSIS [None]
